FAERS Safety Report 18899731 (Version 2)
Quarter: 2021Q2

REPORT INFORMATION
  Report Type: Spontaneous
  Country: GB (occurrence: GB)
  Receive Date: 20210216
  Receipt Date: 20210414
  Transmission Date: 20210717
  Serious: Yes (Other)
  Sender: FDA-Public Use
  Company Number: GB-ALXN-A202102071

PATIENT
  Age: 18 Year
  Sex: Male

DRUGS (7)
  1. SOLIRIS [Suspect]
     Active Substance: ECULIZUMAB
     Dosage: EVERY 6 WEEKS
     Route: 065
  2. SOLIRIS [Suspect]
     Active Substance: ECULIZUMAB
     Dosage: UNK, Q2W
     Route: 065
  3. SOLIRIS [Suspect]
     Active Substance: ECULIZUMAB
     Dosage: EXTRA 2 DOSES OF 1200 MG, QW
     Route: 065
  4. SOLIRIS [Suspect]
     Active Substance: ECULIZUMAB
     Indication: ATYPICAL HAEMOLYTIC URAEMIC SYNDROME
     Dosage: UNK, QW
     Route: 065
  5. SOLIRIS [Suspect]
     Active Substance: ECULIZUMAB
     Dosage: EXTRA DOSE OF 1200 MG
     Route: 065
  6. SOLIRIS [Suspect]
     Active Substance: ECULIZUMAB
     Dosage: EVERY 4 WEEKS
     Route: 065
  7. SOLIRIS [Suspect]
     Active Substance: ECULIZUMAB
     Dosage: EVERY 6 WEEKS
     Route: 065

REACTIONS (9)
  - Chronic kidney disease [Unknown]
  - Perivascular dermatitis [Unknown]
  - Face oedema [Unknown]
  - Ulcer [Unknown]
  - Skin lesion [Unknown]
  - Proteinuria [Unknown]
  - Blood pressure increased [Unknown]
  - Thrombotic microangiopathy [Unknown]
  - Condition aggravated [Not Recovered/Not Resolved]
